FAERS Safety Report 9215892 (Version 2)
Quarter: 2013Q2

REPORT INFORMATION
  Report Type: Spontaneous
  Country: RU (occurrence: None)
  Receive Date: 20130403
  Receipt Date: 20130408
  Transmission Date: 20140414
  Serious: Yes (Life-Threatening)
  Sender: FDA-Public Use
  Company Number: RU-1197324

PATIENT
  Age: 72 Year
  Sex: Female

DRUGS (1)
  1. TRAVATAN [Suspect]
     Indication: OPEN ANGLE GLAUCOMA
     Route: 047

REACTIONS (7)
  - Blood pressure systolic increased [None]
  - Urinary retention [None]
  - Oedema [None]
  - Drug ineffective [None]
  - Generalised oedema [None]
  - Back pain [None]
  - Pain [None]
